FAERS Safety Report 7418159-0 (Version None)
Quarter: 2011Q2

REPORT INFORMATION
  Report Type: 
  Country: None (occurrence: None)
  Receive Date: 20110415
  Receipt Date: 20110404
  Transmission Date: 20111010
  Serious: Yes (Disabling, Other)
  Sender: FDA-Public Use
  Company Number: GB-WATSON-2011-05138

PATIENT
  Age: 30 Year
  Sex: Female
  Weight: 112 kg

DRUGS (1)
  1. SERTRALINE HYDROCHLORIDE [Suspect]
     Indication: POSTPARTUM DEPRESSION
     Dosage: 50 MG, UNK
     Route: 048
     Dates: start: 20110318, end: 20110321

REACTIONS (3)
  - HYPOTONIA [None]
  - CHOREOATHETOSIS [None]
  - DISORIENTATION [None]
